FAERS Safety Report 7712150-2 (Version None)
Quarter: 2011Q3

REPORT INFORMATION
  Report Type: 
  Country: None (occurrence: None)
  Receive Date: 20110822
  Receipt Date: 20110812
  Transmission Date: 20111222
  Serious: Yes (Hospitalization, Other)
  Sender: FDA-Public Use
  Company Number: 2011SP033289

PATIENT
  Sex: Female

DRUGS (5)
  1. ZEGERID OTC [Suspect]
     Indication: PRODUCT USED FOR UNKNOWN INDICATION
     Dosage: 40 MG;QOD;PO ; 40 MG;ONCE;PO
     Route: 048
     Dates: start: 20110708
  2. ZEGERID OTC [Suspect]
     Indication: PRODUCT USED FOR UNKNOWN INDICATION
     Dosage: 40 MG;QOD;PO ; 40 MG;ONCE;PO
     Route: 048
     Dates: start: 20110710
  3. VITAMIN D [Concomitant]
  4. OMEPRAZOLE [Concomitant]
  5. PRILOSEC [Suspect]
     Indication: PRODUCT USED FOR UNKNOWN INDICATION
     Dosage: 1 DF
     Dates: start: 20110709

REACTIONS (23)
  - SWELLING [None]
  - TREMOR [None]
  - RASH [None]
  - HYPOAESTHESIA [None]
  - CONTUSION [None]
  - ARTHRITIS [None]
  - HYPERSENSITIVITY [None]
  - POLLAKIURIA [None]
  - DERMATITIS [None]
  - GLOSSODYNIA [None]
  - JOINT SWELLING [None]
  - THIRST [None]
  - URTICARIA [None]
  - MUSCLE SWELLING [None]
  - DISCOMFORT [None]
  - VISION BLURRED [None]
  - HYPERTENSION [None]
  - SKIN DISORDER [None]
  - PAIN [None]
  - HUNGER [None]
  - PRURITUS [None]
  - LIP SWELLING [None]
  - STOMATITIS [None]
